FAERS Safety Report 7680525-6 (Version None)
Quarter: 2011Q3

REPORT INFORMATION
  Report Type: 
  Country: None (occurrence: None)
  Receive Date: 20110812
  Receipt Date: 20110801
  Transmission Date: 20111222
  Serious: Yes (Hospitalization, Other)
  Sender: FDA-Public Use
  Company Number: US-JNJFOC-20070100520

PATIENT
  Sex: Male
  Weight: 55.8 kg

DRUGS (8)
  1. INFLIXIMAB [Suspect]
     Indication: INFLAMMATORY BOWEL DISEASE
     Route: 042
     Dates: end: 20060922
  2. INFLIXIMAB [Suspect]
     Dosage: 1 INFUSION ON UNKNOWN DATE
     Route: 042
     Dates: start: 20060908
  3. AZATHIOPRINE [Concomitant]
  4. METHYLPREDNISOLONE ACETATE [Concomitant]
     Route: 042
  5. INFLIXIMAB [Suspect]
     Dosage: 1 INFUSION ON UNKNOWN DATE
     Route: 042
     Dates: start: 20060908
  6. INFLIXIMAB [Suspect]
     Indication: COLITIS
     Route: 042
     Dates: end: 20060922
  7. INFLIXIMAB [Suspect]
     Indication: COLITIS ULCERATIVE
     Dosage: 1 INFUSION ON UNKNOWN DATE
     Route: 042
     Dates: start: 20060908
  8. INFLIXIMAB [Suspect]
     Route: 042
     Dates: end: 20060922

REACTIONS (1)
  - COLITIS ULCERATIVE [None]
